FAERS Safety Report 7525065-X (Version None)
Quarter: 2011Q2

REPORT INFORMATION
  Report Type: 
  Country: None (occurrence: None)
  Receive Date: 20110602
  Receipt Date: 20110602
  Transmission Date: 20111010
  Serious: Yes (Hospitalization)
  Sender: FDA-Public Use
  Company Number: None

PATIENT
  Sex: Female
  Weight: 56.8 kg

DRUGS (7)
  1. TAXOL [Suspect]
     Dosage: 219 MG
  2. LIPITOR [Concomitant]
  3. IFOSFAMIDE [Suspect]
     Dosage: 2.6 G
  4. SERTRALINE HYDROCHLORIDE [Concomitant]
  5. AMLODIPINE BESY-BENAZEPRIL HCL [Concomitant]
  6. PLAVIX [Concomitant]
  7. GLIPIZIDE [Concomitant]

REACTIONS (5)
  - DYSARTHRIA [None]
  - ANXIETY [None]
  - CEREBRAL ARTERY STENOSIS [None]
  - HEART RATE INCREASED [None]
  - ASTHENIA [None]
